FAERS Safety Report 14326655 (Version 1)
Quarter: 2017Q4

REPORT INFORMATION
  Report Type: Spontaneous
  Country: US (occurrence: US)
  Receive Date: 20171227
  Receipt Date: 20171227
  Transmission Date: 20180321
  Serious: No
  Sender: FDA-Public Use
  Company Number: US-TEVA-2017-US-829053

PATIENT
  Sex: Male

DRUGS (1)
  1. EQ HAIR REGROWTH [Suspect]
     Active Substance: MINOXIDIL

REACTIONS (6)
  - Pain of skin [Unknown]
  - Skin exfoliation [None]
  - Laceration [Unknown]
  - Skin lesion [None]
  - Erythema [Unknown]
  - Rash erythematous [Unknown]
